FAERS Safety Report 7054839-7 (Version None)
Quarter: 2010Q4

REPORT INFORMATION
  Report Type: 
  Country: None (occurrence: None)
  Receive Date: 20101021
  Receipt Date: 20101012
  Transmission Date: 20110411
  Serious: Yes (Hospitalization)
  Sender: FDA-Public Use
  Company Number: 2008BI012414

PATIENT
  Age: 43 Year
  Sex: Female

DRUGS (3)
  1. AVONEX [Suspect]
     Indication: MULTIPLE SCLEROSIS
     Route: 030
     Dates: start: 20030101, end: 20080725
  2. AVONEX [Suspect]
     Route: 030
     Dates: start: 20000101, end: 20030101
  3. AVONEX [Suspect]
     Route: 030
     Dates: start: 20080801, end: 20091101

REACTIONS (6)
  - FATIGUE [None]
  - MULTIPLE SCLEROSIS [None]
  - MULTIPLE SCLEROSIS RELAPSE [None]
  - MUSCULAR WEAKNESS [None]
  - URINARY TRACT INFECTION [None]
  - UTERINE LEIOMYOMA [None]
